FAERS Safety Report 10915178 (Version 1)
Quarter: 2015Q1

REPORT INFORMATION
  Report Type: Spontaneous
  Country: US (occurrence: US)
  Receive Date: 20150316
  Receipt Date: 20150316
  Transmission Date: 20150721
  Serious: No
  Sender: FDA-Public Use
  Company Number: US-BRISTOL-MYERS SQUIBB COMPANY-BMS-2015-014893

PATIENT
  Age: 56 Year
  Sex: Male

DRUGS (1)
  1. ABILIFY [Suspect]
     Active Substance: ARIPIPRAZOLE
     Indication: PRODUCT USED FOR UNKNOWN INDICATION
     Dosage: 30 MG, BID
     Route: 065

REACTIONS (6)
  - Adverse event [Unknown]
  - Restless legs syndrome [Unknown]
  - Mood swings [Unknown]
  - Nasal discomfort [Unknown]
  - Dyskinesia [Unknown]
  - Muscle twitching [Unknown]

NARRATIVE: CASE EVENT DATE: 201501
